FAERS Safety Report 25137522 (Version 1)
Quarter: 2025Q1

REPORT INFORMATION
  Report Type: Spontaneous
  Country: AU (occurrence: AU)
  Receive Date: 20250329
  Receipt Date: 20250329
  Transmission Date: 20250408
  Serious: Yes (Other)
  Sender: ACCORD
  Company Number: None

PATIENT
  Sex: Female

DRUGS (8)
  1. TACROLIMUS [Suspect]
     Active Substance: TACROLIMUS
     Indication: Product used for unknown indication
  2. IMMUNOGLOBULIN [Concomitant]
  3. AMPHOTERICIN B [Concomitant]
     Active Substance: AMPHOTERICIN B
  4. CYCLOPHOSPHAMIDE [Concomitant]
     Active Substance: CYCLOPHOSPHAMIDE
  5. GANCICLOVIR [Concomitant]
     Active Substance: GANCICLOVIR
  6. HYDROCORTISONE [Concomitant]
     Active Substance: HYDROCORTISONE
  7. ISONIAZID [Concomitant]
     Active Substance: ISONIAZID
  8. METHYLPREDNISOLONE [Concomitant]
     Active Substance: METHYLPREDNISOLONE

REACTIONS (5)
  - Pneumonia staphylococcal [Unknown]
  - Multiple organ dysfunction syndrome [Unknown]
  - Pneumonia [Unknown]
  - Pneumonia pseudomonal [Unknown]
  - Sepsis [Unknown]
